FAERS Safety Report 11252883 (Version 1)
Quarter: 2015Q3

REPORT INFORMATION
  Report Type: Spontaneous
  Country: CN (occurrence: CN)
  Receive Date: 20150708
  Receipt Date: 20150708
  Transmission Date: 20151125
  Serious: Yes (Hospitalization)
  Sender: FDA-Public Use
  Company Number: CN-B.I. PHARMACEUTICALS,INC./RIDGEFIELD-2015-BI-36140CS

PATIENT
  Age: 80 Year
  Sex: Male

DRUGS (2)
  1. AMINOPHYLLINE. [Concomitant]
     Active Substance: AMINOPHYLLINE
     Indication: WHEEZING
     Route: 065
  2. ATROVENT [Suspect]
     Active Substance: IPRATROPIUM BROMIDE
     Indication: WHEEZING
     Route: 055
     Dates: start: 2013

REACTIONS (2)
  - Wheezing [Not Recovered/Not Resolved]
  - Drug effect decreased [Not Recovered/Not Resolved]
